FAERS Safety Report 19890112 (Version 1)
Quarter: 2021Q3

REPORT INFORMATION
  Report Type: Spontaneous
  Country: CN (occurrence: CN)
  Receive Date: 20210927
  Receipt Date: 20210927
  Transmission Date: 20211014
  Serious: Yes (Other)
  Sender: FDA-Public Use
  Company Number: CN-PFIZER INC-202101206694

PATIENT
  Age: 7 Year
  Sex: Female
  Weight: 24.3 kg

DRUGS (4)
  1. VORICONAZOLE. [Suspect]
     Active Substance: VORICONAZOLE
     Indication: FEBRILE NEUTROPENIA
     Dosage: 200 MG, 2X/DAY
     Route: 041
     Dates: start: 20210906, end: 20210908
  2. MEROPENEM. [Suspect]
     Active Substance: MEROPENEM
     Indication: FEBRILE NEUTROPENIA
     Dosage: 490 MG, 3X/DAY
     Route: 041
     Dates: start: 20210831, end: 20210907
  3. ADEMETIONINE 1,4?BUTANEDISULFONATE [Concomitant]
     Active Substance: ADEMETIONINE BUTANEDISULFONATE
     Indication: THERAPEUTIC PROCEDURE
     Dosage: 500 MG, 2X/DAY
     Route: 041
     Dates: start: 20210904, end: 20210907
  4. VANCOMYCIN HYDROCHLORIDE. [Concomitant]
     Active Substance: VANCOMYCIN HYDROCHLORIDE
     Indication: FEBRILE NEUTROPENIA
     Dosage: 245 MG, 4X/DAY
     Route: 041
     Dates: start: 20210902, end: 20210912

REACTIONS (1)
  - Neurotoxicity [Recovering/Resolving]

NARRATIVE: CASE EVENT DATE: 20210907
